FAERS Safety Report 7176611 (Version 3)
Quarter: 2020Q3

REPORT INFORMATION
  Report Type: Report from Study
  Country: JP (occurrence: JP)
  Receive Date: 20091113
  Receipt Date: 20091221
  Transmission Date: 20201104
  Serious: Yes (Hospitalization)
  Sender: FDA-Public Use
  Company Number: JP-ROCHE-665928

PATIENT
  Age: 63 Year
  Sex: Male

DRUGS (10)
  1. CAPECITABINE. [Suspect]
     Active Substance: CAPECITABINE
     Route: 048
     Dates: start: 20091109
  2. CAPECITABINE. [Suspect]
     Active Substance: CAPECITABINE
     Indication: METASTATIC GASTRIC CANCER
     Route: 048
     Dates: start: 20091008, end: 20091021
  3. CEDIRANIB. [Suspect]
     Active Substance: CEDIRANIB
     Indication: METASTATIC GASTRIC CANCER
     Dosage: FORM: ORAL FORMULATION (NOT OTHERWISE SPECIFIED)
     Route: 048
     Dates: start: 20091009, end: 20091027
  4. CEDIRANIB. [Suspect]
     Active Substance: CEDIRANIB
     Dosage: FORM: ORAL FORMULATION (NOT OTHERWISE SPECIFIED)
     Route: 048
     Dates: start: 20091109
  5. CISPLATIN. [Concomitant]
     Active Substance: CISPLATIN
     Route: 041
     Dates: start: 20091008, end: 20091008
  6. AMLODIPINE [Concomitant]
     Active Substance: AMLODIPINE BESYLATE
     Route: 048
     Dates: start: 20091014, end: 20091027
  7. CISPLATIN. [Concomitant]
     Active Substance: CISPLATIN
     Route: 041
     Dates: start: 20091109, end: 20091109
  8. AMLODIPINE [Concomitant]
     Active Substance: AMLODIPINE BESYLATE
     Route: 048
     Dates: start: 20091010, end: 20091010
  9. AMLODIPINE [Concomitant]
     Active Substance: AMLODIPINE BESYLATE
     Route: 048
     Dates: start: 20091011, end: 20091013
  10. AMLODIPINE [Concomitant]
     Active Substance: AMLODIPINE BESYLATE
     Route: 048
     Dates: start: 20091112

REACTIONS (10)
  - Decreased appetite [Recovered/Resolved]
  - Blood phosphorus decreased [Recovered/Resolved]
  - Diarrhoea [Recovering/Resolving]
  - Platelet count decreased [Recovered/Resolved]
  - Fatigue [Recovered/Resolved]
  - Hypothyroidism [Unknown]
  - Abdominal pain [Recovering/Resolving]
  - Neutrophil count decreased [Recovered/Resolved]
  - Electrocardiogram QT prolonged [Recovered/Resolved]
  - Hyponatraemia [Recovered/Resolved]

NARRATIVE: CASE EVENT DATE: 20091020
